FAERS Safety Report 18236272 (Version 3)
Quarter: 2022Q1

REPORT INFORMATION
  Report Type: Report from Study
  Country: US (occurrence: US)
  Receive Date: 20200906
  Receipt Date: 20220107
  Transmission Date: 20220423
  Serious: Yes (Hospitalization)
  Sender: FDA-Public Use
  Company Number: US-PFIZER INC-2020330538

PATIENT
  Age: 2 Year
  Sex: Male
  Weight: 19.2 kg

DRUGS (10)
  1. TEMSIROLIMUS [Suspect]
     Active Substance: TEMSIROLIMUS
     Dosage: 15MG/M2, CYCLES 1-4 (DAYS 1, 8, AND 15)
     Route: 042
     Dates: start: 20200312
  2. TEMSIROLIMUS [Suspect]
     Active Substance: TEMSIROLIMUS
     Dosage: 15MG/M2, CYCLES 5-10 (DAYS 1, 8, 15 OF CYCLES 8, 9,10)
     Route: 042
     Dates: end: 20200528
  3. VINCRISTINE SULFATE [Suspect]
     Active Substance: VINCRISTINE SULFATE
     Dosage: 1.5MG/M2, CYCLES 1-4 (DAYS 1, 8, AND 15)
     Route: 042
     Dates: start: 20200312
  4. VINCRISTINE SULFATE [Suspect]
     Active Substance: VINCRISTINE SULFATE
     Dosage: 1.5MG/M2, CYCLES 5-10 (DAY 1 CYCLES 5 +10,DAYS 1 + 8 OF CYCLES 6, 7, 9,  DAYS 1, 8, 15 OF CYCLE 8)
     Route: 042
     Dates: end: 20200716
  5. IRINOTECAN HYDROCHLORIDE [Suspect]
     Active Substance: IRINOTECAN HYDROCHLORIDE
     Dosage: 50MG/M2, CYCLES 1-4 (DAYS 1-5 OF CYCLES 2 AND 4)
     Route: 042
     Dates: start: 20200402
  6. IRINOTECAN HYDROCHLORIDE [Suspect]
     Active Substance: IRINOTECAN HYDROCHLORIDE
     Dosage: 50MG/M2, CYCLES 5-10 (DAYS 1-5 OF CYCLES 6, 7 AND 9)
     Route: 042
     Dates: end: 20200713
  7. DACTINOMYCIN [Suspect]
     Active Substance: DACTINOMYCIN
     Dosage: 0.05MG/KG  CYCLES 1-4 (DAY 1 OF CYCLES 1 AND 3)
     Route: 042
     Dates: start: 20200312
  8. DACTINOMYCIN [Suspect]
     Active Substance: DACTINOMYCIN
     Dosage: 0.05MG/KG  CYCLES 5-10 (DAY 1 OF CYCLES 5, 8 AND 10)
     Route: 042
     Dates: end: 20200617
  9. CYCLOPHOSPHAMIDE [Suspect]
     Active Substance: CYCLOPHOSPHAMIDE
     Dosage: 1200MG/M2  CYCLES 1-4 (DAY 1 OF CYCLES 1 AND 3)
     Route: 042
     Dates: start: 20200312
  10. CYCLOPHOSPHAMIDE [Suspect]
     Active Substance: CYCLOPHOSPHAMIDE
     Dosage: 1200MG/M2 CYCLES 5-10 (DAY 1 OF CYCLES 5, 8 AND 10)
     Route: 042
     Dates: end: 20200617

REACTIONS (2)
  - Blood bilirubin increased [Recovering/Resolving]
  - Venoocclusive liver disease [Recovering/Resolving]

NARRATIVE: CASE EVENT DATE: 20200721
